FAERS Safety Report 13131239 (Version 4)
Quarter: 2017Q1

REPORT INFORMATION
  Report Type: Spontaneous
  Country: JP (occurrence: JP)
  Receive Date: 20170119
  Receipt Date: 20170302
  Transmission Date: 20170428
  Serious: Yes (Death, Hospitalization, Disabling, Other)
  Sender: FDA-Public Use
  Company Number: JP-ELI_LILLY_AND_COMPANY-JP201701002991

PATIENT
  Age: 87 Year
  Sex: Male
  Weight: 45 kg

DRUGS (12)
  1. REFLEX                             /01293201/ [Concomitant]
     Active Substance: MIRTAZAPINE
     Dosage: 30 MG, QD
     Route: 048
     Dates: end: 20170108
  2. BIOFERMIN                          /07958301/ [Concomitant]
     Dosage: UNK
     Route: 048
     Dates: end: 20170108
  3. LASIX [Concomitant]
     Active Substance: FUROSEMIDE
     Indication: OEDEMA
     Dosage: UNK
     Route: 048
     Dates: end: 20170108
  4. REQUIP [Concomitant]
     Active Substance: ROPINIROLE HYDROCHLORIDE
     Dosage: 2 MG, QD
     Route: 048
     Dates: end: 20170108
  5. AMOBAN [Concomitant]
     Active Substance: ZOPICLONE
     Indication: INSOMNIA
     Dosage: 7.5 MG, QD
     Route: 048
     Dates: end: 20170108
  6. MAGMITT [Concomitant]
     Active Substance: MAGNESIUM OXIDE
     Dosage: UNK
     Route: 048
     Dates: end: 20170108
  7. ROZEREM [Concomitant]
     Active Substance: RAMELTEON
     Indication: INSOMNIA
     Dosage: 8 MG, QD
     Route: 048
     Dates: end: 20170108
  8. HARNAL [Concomitant]
     Active Substance: TAMSULOSIN HYDROCHLORIDE
     Dosage: 0.2 G, QD
     Route: 048
     Dates: end: 20170108
  9. REMINYL [Concomitant]
     Active Substance: GALANTAMINE
     Dosage: UNK
     Route: 048
     Dates: end: 20170108
  10. ZYPREXA [Suspect]
     Active Substance: OLANZAPINE
     Indication: DELIRIUM
     Dosage: 5 MG, QD
     Route: 048
     Dates: end: 20170108
  11. REFLEX                             /01293201/ [Concomitant]
     Active Substance: MIRTAZAPINE
     Dosage: UNK
     Route: 048
     Dates: end: 20170108
  12. GASTER [Concomitant]
     Active Substance: FAMOTIDINE
     Dosage: UNK
     Route: 048
     Dates: end: 20170108

REACTIONS (5)
  - Hypoglycaemia [Unknown]
  - Hypoglycaemic encephalopathy [Fatal]
  - Off label use [Recovered/Resolved]
  - Pneumonia aspiration [Unknown]
  - Pleural effusion [Unknown]

NARRATIVE: CASE EVENT DATE: 20161228
